FAERS Safety Report 4849402-X (Version None)
Quarter: 2005Q4

REPORT INFORMATION
  Report Type: 
  Country: None (occurrence: None)
  Receive Date: 20051207
  Receipt Date: 20051128
  Transmission Date: 20060501
  Serious: Yes (Hospitalization, Other)
  Sender: FDA-Public Use
  Company Number: 2005-11-1165

PATIENT
  Age: 51 Year
  Sex: Male

DRUGS (1)
  1. GRISEOFULVIN [Suspect]
     Indication: DERMATITIS
     Dosage: 330 MG QD ORAL
     Route: 048

REACTIONS (6)
  - ECCHYMOSIS [None]
  - HAEMOGLOBIN DECREASED [None]
  - HAEMORRHAGE [None]
  - MUSCLE SWELLING [None]
  - PLATELET COUNT DECREASED [None]
  - WHITE BLOOD CELL COUNT INCREASED [None]
